FAERS Safety Report 21290056 (Version 1)
Quarter: 2022Q3

REPORT INFORMATION
  Report Type: Spontaneous
  Country: RU (occurrence: RU)
  Receive Date: 20220902
  Receipt Date: 20220902
  Transmission Date: 20221027
  Serious: Yes (Other)
  Sender: FDA-Public Use
  Company Number: RU-ViiV Healthcare Limited-RU2022EME124553

PATIENT

DRUGS (54)
  1. ZIDOVUDINE [Suspect]
     Active Substance: ZIDOVUDINE
     Indication: HIV infection
     Dosage: 2.5 ML, TID (3 TIMES A DAY)
     Dates: start: 1999, end: 200202
  2. LAMIVUDINE [Suspect]
     Active Substance: LAMIVUDINE
     Indication: HIV infection
     Dosage: UNK
     Dates: end: 200401
  3. LAMIVUDINE [Suspect]
     Active Substance: LAMIVUDINE
     Dosage: UNK
     Dates: start: 2003, end: 2007
  4. LAMIVUDINE [Suspect]
     Active Substance: LAMIVUDINE
     Dosage: UNK
     Dates: start: 200801
  5. LAMIVUDINE [Suspect]
     Active Substance: LAMIVUDINE
     Dosage: UNK
     Dates: start: 2009
  6. LAMIVUDINE [Suspect]
     Active Substance: LAMIVUDINE
     Dosage: UNK
     Dates: start: 2010
  7. LAMIVUDINE [Suspect]
     Active Substance: LAMIVUDINE
     Dosage: 300 MG/DAY
     Dates: start: 2014
  8. LAMIVUDINE [Suspect]
     Active Substance: LAMIVUDINE
     Dosage: 300 MG/DAY
     Dates: start: 201503
  9. LAMIVUDINE [Suspect]
     Active Substance: LAMIVUDINE
     Dosage: 300 MG/DAY
     Dates: start: 201809
  10. LAMIVUDINE [Suspect]
     Active Substance: LAMIVUDINE
     Dosage: 300 MG/DAY
     Dates: start: 202003
  11. ABACAVIR [Suspect]
     Active Substance: ABACAVIR
     Indication: HIV infection
     Dosage: UNK
     Dates: start: 200801
  12. ABACAVIR [Suspect]
     Active Substance: ABACAVIR
     Dosage: UNK
     Dates: start: 2009
  13. ABACAVIR [Suspect]
     Active Substance: ABACAVIR
     Dosage: UNK
     Dates: start: 2010
  14. TENOFOVIR DISOPROXIL FUMARATE [Suspect]
     Active Substance: TENOFOVIR DISOPROXIL FUMARATE
     Indication: HIV infection
     Dosage: 300 MG/DAY
     Dates: start: 201411
  15. TENOFOVIR DISOPROXIL FUMARATE [Suspect]
     Active Substance: TENOFOVIR DISOPROXIL FUMARATE
     Dosage: 300 MG/DAY
     Dates: start: 202003
  16. DOLUTEGRAVIR [Suspect]
     Active Substance: DOLUTEGRAVIR
     Indication: HIV infection
     Dosage: 100 MG/DAY
     Dates: start: 201707, end: 20200311
  17. DOLUTEGRAVIR [Suspect]
     Active Substance: DOLUTEGRAVIR
     Dosage: 100 MG/DAY
     Dates: start: 20201211
  18. NELFINAVIR [Suspect]
     Active Substance: NELFINAVIR
     Indication: HIV infection
     Dosage: UNK
     Dates: end: 200208
  19. NELFINAVIR [Suspect]
     Active Substance: NELFINAVIR
     Dosage: UNK
     Dates: start: 2003, end: 2007
  20. NELFINAVIR [Suspect]
     Active Substance: NELFINAVIR
     Dosage: UNK
     Dates: end: 200401
  21. STAVUDINE [Suspect]
     Active Substance: STAVUDINE
     Indication: HIV infection
     Dosage: UNK
     Dates: start: 200202, end: 200401
  22. STAVUDINE [Suspect]
     Active Substance: STAVUDINE
     Dosage: UNK
     Dates: start: 2003, end: 2007
  23. LOPINAVIR\RITONAVIR [Suspect]
     Active Substance: LOPINAVIR\RITONAVIR
     Indication: HIV infection
     Dosage: UNK
     Dates: start: 200208, end: 2003
  24. LOPINAVIR\RITONAVIR [Suspect]
     Active Substance: LOPINAVIR\RITONAVIR
     Dosage: UNK
     Dates: start: 200401, end: 2007
  25. LOPINAVIR\RITONAVIR [Suspect]
     Active Substance: LOPINAVIR\RITONAVIR
     Dosage: UNK
     Dates: start: 2009
  26. LOPINAVIR\RITONAVIR [Suspect]
     Active Substance: LOPINAVIR\RITONAVIR
     Dosage: UNK
     Dates: start: 2010
  27. LOPINAVIR\RITONAVIR [Suspect]
     Active Substance: LOPINAVIR\RITONAVIR
     Dosage: 800/200 MG PER DAY
     Dates: start: 201411
  28. DIDANOSINE [Suspect]
     Active Substance: DIDANOSINE
     Indication: HIV infection
     Dosage: UNK
     Dates: start: 200401
  29. EFAVIRENZ [Suspect]
     Active Substance: EFAVIRENZ
     Indication: HIV infection
     Dosage: UNK
     Dates: start: 200801
  30. ENFUVIRTIDE [Suspect]
     Active Substance: ENFUVIRTIDE
     Indication: HIV infection
     Dosage: 2 MG/KG, BID (TWICE A DAY)
     Route: 058
     Dates: start: 200804
  31. ETRAVIRINE [Suspect]
     Active Substance: ETRAVIRINE
     Indication: HIV infection
     Dosage: 400 MG/DAY
     Dates: start: 2014, end: 2014
  32. RALTEGRAVIR [Suspect]
     Active Substance: RALTEGRAVIR
     Indication: HIV infection
     Dosage: 800 MG/DAY
     Dates: start: 2014
  33. RALTEGRAVIR [Suspect]
     Active Substance: RALTEGRAVIR
     Dosage: 800 MG/DAY
     Dates: start: 201503
  34. DARUNAVIR [Suspect]
     Active Substance: DARUNAVIR
     Indication: HIV infection
     Dosage: 1200 MG/DAY
     Dates: start: 201411
  35. DARUNAVIR [Suspect]
     Active Substance: DARUNAVIR
     Dosage: 1200 MG/DAY
     Dates: start: 201503
  36. DARUNAVIR [Suspect]
     Active Substance: DARUNAVIR
     Dosage: 1200 MG/DAY
     Dates: start: 201707
  37. DARUNAVIR [Suspect]
     Active Substance: DARUNAVIR
     Dosage: 1200 MG/DAY
     Dates: start: 20201223
  38. DARUNAVIR [Suspect]
     Active Substance: DARUNAVIR
     Dosage: 2400 MG PER DAY
     Dates: start: 202003
  39. DARUNAVIR [Suspect]
     Active Substance: DARUNAVIR
     Dosage: 1200 MG PER DAY
     Dates: start: 20201211
  40. RITONAVIR [Suspect]
     Active Substance: RITONAVIR
     Indication: HIV infection
     Dosage: 200 MG/DAY
     Dates: start: 201503
  41. RITONAVIR [Suspect]
     Active Substance: RITONAVIR
     Dosage: 200 MG/DAY
     Dates: start: 201707
  42. RITONAVIR [Suspect]
     Active Substance: RITONAVIR
     Dosage: 200 MG/DAY
     Dates: start: 20201223
  43. RITONAVIR [Suspect]
     Active Substance: RITONAVIR
     Dosage: 200 PER DAY
     Dates: start: 202003
  44. RITONAVIR [Suspect]
     Active Substance: RITONAVIR
     Dosage: 200 PER DAY
     Dates: start: 20201211
  45. ELSULFAVIRINE [Suspect]
     Active Substance: ELSULFAVIRINE
     Indication: HIV infection
     Dosage: 20 MG/DAY
     Dates: start: 201809
  46. LABUVIRTIDE [Suspect]
     Active Substance: LABUVIRTIDE
     Indication: HIV infection
     Dosage: 320 MG (ON DAYS 1, 2, 3, 8, THEN - ONCE WEEK)
     Route: 042
     Dates: start: 20200311
  47. LABUVIRTIDE [Suspect]
     Active Substance: LABUVIRTIDE
     Dosage: 320 MG ONCE A WEEK
     Route: 042
     Dates: start: 20201223
  48. IBALIZUMAB [Suspect]
     Active Substance: IBALIZUMAB
     Indication: HIV infection
     Dosage: 2000 MG (DISSOLUTION IN 250 ML OF 0.9% ISOTONIC SODIUM CHLORIDE SOLUTION AT A LOADING DOSE OF 2,000
     Route: 042
     Dates: start: 20201223
  49. IBALIZUMAB [Suspect]
     Active Substance: IBALIZUMAB
     Dosage: 800 MG (DISSOLUTION IN 250 ML OF 0.9% ISOTONIC SODIUM CHLORIDE SOLUTION, THEN AT A MAINTENANCE DOSE
     Route: 042
  50. ISOTONIC SODIUM CHLORIDE SOLUTION INJECTION [Concomitant]
     Indication: HIV infection
     Dosage: 250 ML (DISSOLUTION IN 250 ML OF 0.9% ISOTONIC SODIUM CHLORIDE SOLUTION AT A LOADING DOSE OF 2,000 M
     Route: 042
     Dates: start: 20201223
  51. ISOTONIC SODIUM CHLORIDE SOLUTION INJECTION [Concomitant]
     Dosage: 250 ML (DISSOLUTION IN 250 ML OF 0.9% ISOTONIC SODIUM CHLORIDE SOLUTION, THEN AT A MAINTENANCE DOSE
     Route: 042
  52. ISONIAZID [Concomitant]
     Active Substance: ISONIAZID
     Indication: Pulmonary tuberculosis
     Dosage: 0.6 MG
     Dates: start: 202012
  53. ETHAMBUTOL [Concomitant]
     Active Substance: ETHAMBUTOL HYDROCHLORIDE
     Indication: Pulmonary tuberculosis
     Dosage: 1.2 MG
     Dates: start: 202012
  54. RIFABUTIN [Concomitant]
     Active Substance: RIFABUTIN
     Indication: Pulmonary tuberculosis
     Dosage: 0.15 MG
     Dates: start: 202012

REACTIONS (6)
  - Pathogen resistance [Unknown]
  - Hepatitis toxic [Unknown]
  - Virologic failure [Not Recovered/Not Resolved]
  - Nausea [Unknown]
  - Vomiting [Unknown]
  - Drug ineffective [Unknown]

NARRATIVE: CASE EVENT DATE: 20020201
